FAERS Safety Report 10228995 (Version 1)
Quarter: 2014Q2

REPORT INFORMATION
  Report Type: Report from Study
  Country: BE (occurrence: BE)
  Receive Date: 20140610
  Receipt Date: 20140610
  Transmission Date: 20141212
  Serious: Yes (Other)
  Sender: FDA-Public Use
  Company Number: BE-BAXTER-2014BAX029062

PATIENT
  Age: 20 Year
  Sex: Male

DRUGS (2)
  1. FEIBA 1000 U, POUDRE ET SOLVANT POUR SOLUTION INJECTABLE [Suspect]
     Indication: FACTOR VIII DEFICIENCY
     Dosage: 4 TIMES
     Route: 051
     Dates: start: 20140512
  2. FEIBA 1000 U, POUDRE ET SOLVANT POUR SOLUTION INJECTABLE [Suspect]
     Dosage: 4 TIMES
     Route: 051
     Dates: start: 20140602

REACTIONS (1)
  - Haemorrhage [Recovering/Resolving]
